FAERS Safety Report 9337463 (Version 1)
Quarter: 2013Q2

REPORT INFORMATION
  Report Type: Spontaneous
  Country: IT (occurrence: IT)
  Receive Date: 20130607
  Receipt Date: 20130607
  Transmission Date: 20140414
  Serious: Yes (Hospitalization)
  Sender: FDA-Public Use
  Company Number: IT-PFIZER INC-2013169686

PATIENT
  Sex: Female

DRUGS (2)
  1. DOXAZOSIN MESILATE [Suspect]
     Dosage: UNK
  2. AMLODIPINE BESILATE [Suspect]
     Dosage: UNK

REACTIONS (2)
  - Angioedema [Recovered/Resolved]
  - Urticaria [Recovered/Resolved]
